FAERS Safety Report 6084345-8 (Version None)
Quarter: 2009Q1

REPORT INFORMATION
  Report Type: 
  Country: None (occurrence: None)
  Receive Date: 20090217
  Receipt Date: 20090202
  Transmission Date: 20090719
  Serious: Yes (Death)
  Sender: FDA-Public Use
  Company Number: 2009AL000820

PATIENT
  Age: 27 Year
  Sex: Male

DRUGS (5)
  1. CITALOPRAM HYDROBROMIDE [Suspect]
     Indication: DEPRESSION
     Dosage: 40 MG; PO
     Route: 048
     Dates: start: 20070601
  2. ZYPREXA [Concomitant]
  3. LORASIFAR [Concomitant]
  4. ZOLPIDEM [Concomitant]
  5. NICOTINE [Concomitant]

REACTIONS (6)
  - DISCOMFORT [None]
  - ELECTROLYTE IMBALANCE [None]
  - GASTROINTESTINAL DISORDER [None]
  - HEAT STROKE [None]
  - PANCREATITIS HAEMORRHAGIC [None]
  - SUDDEN DEATH [None]
